FAERS Safety Report 23397836 (Version 1)
Quarter: 2024Q1

REPORT INFORMATION
  Report Type: Spontaneous
  Country: ES (occurrence: ES)
  Receive Date: 20240112
  Receipt Date: 20240112
  Transmission Date: 20240409
  Serious: Yes (Hospitalization)
  Sender: FDA-Public Use
  Company Number: None

PATIENT
  Age: 91 Year
  Sex: Female

DRUGS (9)
  1. FUROSEMIDE [Suspect]
     Active Substance: FUROSEMIDE
     Indication: Cardiac failure
     Dates: start: 20220709, end: 20230720
  2. OMEPRAZOLE [Concomitant]
     Active Substance: OMEPRAZOLE
     Indication: Osteoarthritis
     Dosage: 20 MG GASTRO-RESISTANT HARD CAPSULES EFG, 28 CAPSULES
     Dates: start: 20120517
  3. ACETAMINOPHEN\TRAMADOL [Concomitant]
     Active Substance: ACETAMINOPHEN\TRAMADOL
     Indication: Arthralgia
     Dosage: TRAMADOL/PARACETAMOL TECNIGEN, 1 TABLET EVERY 12 HOURS
     Dates: start: 20190725
  4. DEPRAX [Concomitant]
     Indication: Anxiety
     Dosage: 100 MG FILM-COATED TABLETS EFG, 30 TABLETS
     Dates: start: 20161005
  5. AMLODIPINE [Concomitant]
     Active Substance: AMLODIPINE BESYLATE
     Indication: Hypertension
     Dosage: 5 MG TABLETS EFG, 30 TABLETS
     Dates: start: 20131210
  6. BIMATOPROST\TIMOLOL [Concomitant]
     Active Substance: BIMATOPROST\TIMOLOL
     Indication: Glaucoma
     Dosage: 0.3 MG/ML + 5 MG/ML EYE DROPS SOLUTION, 1 BOTTLE OF 3 ML
     Dates: start: 20130928
  7. BILASTINE [Concomitant]
     Active Substance: BILASTINE
     Indication: Pruritus
     Dosage: 20 MG TABLETS EFG, 20 TABLETS (OPA-AL-PVC/AL)
     Dates: start: 20230502
  8. LOSARTAN AND HYDROCHLOROTHIAZIDE [Concomitant]
     Active Substance: HYDROCHLOROTHIAZIDE\LOSARTAN POTASSIUM
     Indication: Essential hypertension
     Dosage: 50/12.5 MG FILM-COATED TABLETS?EFG, 28 TABLETS
     Dates: start: 20080822
  9. LYRICA [Concomitant]
     Active Substance: PREGABALIN
     Indication: Hyperaesthesia
     Dosage: 25 MG HARD CAPSULES, 56 CAPSULES
     Dates: start: 20170629

REACTIONS (1)
  - Acute kidney injury [Recovered/Resolved]

NARRATIVE: CASE EVENT DATE: 20230720
